FAERS Safety Report 23951575 (Version 2)
Quarter: 2024Q3

REPORT INFORMATION
  Report Type: Spontaneous
  Country: US (occurrence: US)
  Receive Date: 20240607
  Receipt Date: 20240711
  Transmission Date: 20241016
  Serious: Yes (Hospitalization)
  Sender: PFIZER
  Company Number: US-PFIZER INC-PV202400073392

PATIENT
  Age: 38 Year
  Sex: Female
  Weight: 84.4 kg

DRUGS (4)
  1. BOSULIF [Suspect]
     Active Substance: BOSUTINIB MONOHYDRATE
     Indication: Chronic myeloid leukaemia
     Dosage: TAKE 1 TABLET BY MOUTH ONCE DAILY. TAKE WITH A MEAL AND LARGE GLASS OF WATER
     Route: 048
  2. BOSULIF [Suspect]
     Active Substance: BOSUTINIB MONOHYDRATE
     Indication: Iron deficiency anaemia
     Dosage: TAKE 1 TABLET BY MOUTH DAILY WITH MEAL AND WATER
     Route: 048
  3. BOSULIF [Suspect]
     Active Substance: BOSUTINIB MONOHYDRATE
     Dosage: 200 MG DAILY FOR TWO WEEKS
  4. XANAX [Concomitant]
     Active Substance: ALPRAZOLAM
     Dosage: TAKE ONE TABLET EVERY 8 HOURS AS NEEDED

REACTIONS (2)
  - Malaise [Unknown]
  - Asthenia [Unknown]

NARRATIVE: CASE EVENT DATE: 20231101
